FAERS Safety Report 10683257 (Version 1)
Quarter: 2014Q4

REPORT INFORMATION
  Report Type: Spontaneous
  Country: US (occurrence: None)
  Receive Date: 20141210
  Receipt Date: 20141210
  Transmission Date: 20150529
  Serious: Yes (Hospitalization)
  Sender: FDA-Public Use
  Company Number: 20131016CINRY5170

PATIENT
  Age: 41 Year
  Sex: Female
  Weight: 134 kg

DRUGS (3)
  1. CINRYZE [Suspect]
     Active Substance: HUMAN C1-ESTERASE INHIBITOR
     Indication: HEREDITARY ANGIOEDEMA
     Route: 042
  2. CINRYZE [Suspect]
     Active Substance: HUMAN C1-ESTERASE INHIBITOR
     Indication: PROPHYLAXIS
     Route: 042
  3. DANAZOL. [Concomitant]
     Active Substance: DANAZOL

REACTIONS (3)
  - Off label use [None]
  - Hereditary angioedema [None]
  - Jugular vein thrombosis [None]
